FAERS Safety Report 7928039-X (Version None)
Quarter: 2011Q4

REPORT INFORMATION
  Report Type: 
  Country: None (occurrence: None)
  Receive Date: 20111117
  Receipt Date: 20111117
  Transmission Date: 20120403
  Serious: Yes (Life-Threatening, Hospitalization)
  Sender: FDA-Public Use
  Company Number: None

PATIENT
  Age: 82 Year
  Sex: Male
  Weight: 84.8226 kg

DRUGS (1)
  1. PRADAXA [Suspect]
     Indication: ATRIAL FIBRILLATION
     Dosage: 150 2 TIMES DAILY
     Dates: start: 20111010, end: 20111027

REACTIONS (3)
  - ARTHRALGIA [None]
  - EPISTAXIS [None]
  - MOUTH HAEMORRHAGE [None]
